FAERS Safety Report 6080239-2 (Version None)
Quarter: 2009Q1

REPORT INFORMATION
  Report Type: 
  Country: None (occurrence: None)
  Receive Date: 20090217
  Receipt Date: 20090210
  Transmission Date: 20090719
  Serious: Yes (Other)
  Sender: FDA-Public Use
  Company Number: US-ASTRAZENECA-2009UW03902

PATIENT
  Age: 9 Year
  Sex: Female
  Weight: 24.5 kg

DRUGS (3)
  1. ARIMIDEX [Suspect]
     Indication: SILVER-RUSSELL SYNDROME
     Route: 048
     Dates: start: 20070401
  2. HUMATROPE [Concomitant]
     Dosage: 25 UNITS DAILY
     Dates: start: 20020101
  3. MIRALAX [Concomitant]
     Dosage: 1/2 CAPFUL DAILY
     Route: 048
     Dates: start: 20070101

REACTIONS (3)
  - NODULE [None]
  - OFF LABEL USE [None]
  - PRURITUS [None]
